FAERS Safety Report 15354145 (Version 1)
Quarter: 2018Q3

REPORT INFORMATION
  Report Type: Spontaneous
  Country: FR (occurrence: FR)
  Receive Date: 20180906
  Receipt Date: 20180906
  Transmission Date: 20181010
  Serious: Yes (Other)
  Sender: FDA-Public Use
  Company Number: PHHY2018FR085723

PATIENT
  Age: 37 Year
  Sex: Female

DRUGS (10)
  1. PARACETAMOL [Suspect]
     Active Substance: ACETAMINOPHEN
     Indication: PAIN
     Dosage: 975 MG, QD, 325 MG X 3/JOUR + CF COMMENTAIRE
     Route: 048
     Dates: start: 20160704
  2. PARACETAMOL [Suspect]
     Active Substance: ACETAMINOPHEN
     Dosage: 975 MG, QD, 325 MG X 3/JOUR + CF COMMENTAIRE
     Route: 048
     Dates: start: 20160706
  3. ATARAX [Suspect]
     Active Substance: HYDROXYZINE HYDROCHLORIDE
     Indication: ANXIETY
     Dosage: 75 MG, QD, 25 MG X 3/JOUR + CF COMMENTAIRE
     Route: 048
     Dates: start: 20160703
  4. MONURIL [Suspect]
     Active Substance: FOSFOMYCIN SODIUM
     Indication: URINARY TRACT INFECTION
     Dosage: 3 G, QD
     Route: 048
     Dates: start: 20160710
  5. TRAMADOL HYDROCHLORIDE. [Suspect]
     Active Substance: TRAMADOL HYDROCHLORIDE
     Indication: PAIN
     Dosage: 112.5 MG, QD, 37.5 MG X 3/J + CF COMMENTAIRE
     Route: 048
     Dates: start: 20160704
  6. VALACICLOVIR [Suspect]
     Active Substance: VALACYCLOVIR HYDROCHLORIDE
     Dosage: 1000 MG, QD
     Route: 048
     Dates: start: 20160711
  7. ATARAX [Suspect]
     Active Substance: HYDROXYZINE HYDROCHLORIDE
     Dosage: 75 MG, QD, 25 MG X 3/JOUR + CF COMMENTAIRE
     Route: 048
     Dates: start: 20160706
  8. GYNO PEVARYL [Suspect]
     Active Substance: ECONAZOLE NITRATE
     Indication: FUNGAL INFECTION
     Dosage: 150 MG, QD
     Route: 067
     Dates: start: 20160625
  9. VALACICLOVIR [Suspect]
     Active Substance: VALACYCLOVIR HYDROCHLORIDE
     Indication: INFECTION
     Dosage: 1000 MG, QD
     Route: 048
     Dates: start: 20160704
  10. TRAMADOL HYDROCHLORIDE. [Suspect]
     Active Substance: TRAMADOL HYDROCHLORIDE
     Dosage: 112.5 MG, QD, 37.5 MG X 3/J + CF COMMENTAIRE
     Route: 048
     Dates: start: 20160706

REACTIONS (1)
  - Abortion spontaneous [Not Recovered/Not Resolved]

NARRATIVE: CASE EVENT DATE: 20160830
